FAERS Safety Report 8821112 (Version 1)
Quarter: 2012Q4

REPORT INFORMATION
  Report Type: Report from Study
  Country: FR (occurrence: FR)
  Receive Date: 20121002
  Receipt Date: 20121002
  Transmission Date: 20130627
  Serious: Yes (Hospitalization)
  Sender: FDA-Public Use
  Company Number: FR-GLAXOSMITHKLINE-B0832994A

PATIENT
  Age: 4 Year
  Sex: Female

DRUGS (2)
  1. TOPOTECAN [Suspect]
     Indication: NEOPLASM
     Dosage: .65MG Cyclic
     Route: 042
     Dates: start: 20120716
  2. TEMOZOLOMIDE [Suspect]
     Indication: NEOPLASM
     Dosage: 130MG Cyclic
     Route: 048
     Dates: start: 20120716

REACTIONS (2)
  - Dizziness [Recovered/Resolved]
  - Nausea [Recovered/Resolved]
